FAERS Safety Report 14184803 (Version 5)
Quarter: 2019Q2

REPORT INFORMATION
  Report Type: Report from Study
  Country: US (occurrence: US)
  Receive Date: 20171113
  Receipt Date: 20190423
  Transmission Date: 20190711
  Serious: Yes (Hospitalization)
  Sender: FDA-Public Use
  Company Number: US-ACTELION-A-US2017-162195

PATIENT
  Sex: Female

DRUGS (12)
  1. SIMVASTATIN. [Concomitant]
     Active Substance: SIMVASTATIN
  2. ISOSORBIDE. [Concomitant]
     Active Substance: ISOSORBIDE
  3. METOPROLOL. [Concomitant]
     Active Substance: METOPROLOL
  4. LANTUS [Concomitant]
     Active Substance: INSULIN GLARGINE
  5. OPSUMIT [Suspect]
     Active Substance: MACITENTAN
     Indication: PULMONARY HYPERTENSION
     Dosage: 10 MG, QD
     Route: 048
     Dates: start: 20160812
  6. FUROSEMIDE. [Concomitant]
     Active Substance: FUROSEMIDE
  7. BACLOFEN. [Concomitant]
     Active Substance: BACLOFEN
  8. WARFARIN [Concomitant]
     Active Substance: WARFARIN
  9. HUMALOG [Concomitant]
     Active Substance: INSULIN LISPRO
  10. VITAMIN D2 [Concomitant]
     Active Substance: ERGOCALCIFEROL
  11. FENOFIBRATE. [Concomitant]
     Active Substance: FENOFIBRATE
  12. HYDRALAZINE [Concomitant]
     Active Substance: HYDRALAZINE HYDROCHLORIDE

REACTIONS (10)
  - Fatigue [Unknown]
  - Cardiac failure congestive [Unknown]
  - Disease complication [Unknown]
  - Mental status changes [Unknown]
  - Speech disorder [Unknown]
  - Dyspnoea [Unknown]
  - Diabetes mellitus [Unknown]
  - Condition aggravated [Unknown]
  - Hospitalisation [Not Recovered/Not Resolved]
  - Cardiac failure [Unknown]
